FAERS Safety Report 7854064-3 (Version None)
Quarter: 2011Q4

REPORT INFORMATION
  Report Type: 
  Country: None (occurrence: None)
  Receive Date: 20111026
  Receipt Date: 20111020
  Transmission Date: 20120403
  Serious: Yes (Death)
  Sender: FDA-Public Use
  Company Number: NL-PFIZER INC-2011237205

PATIENT
  Age: 56 Year
  Sex: Male
  Weight: 80 kg

DRUGS (9)
  1. SOMATROPIN [Suspect]
     Indication: HYPOPITUITARISM
     Dosage: 0.7 MG, 1X/DAY
     Route: 058
     Dates: start: 19991101
  2. FERROFUMARAT [Concomitant]
     Indication: ANAEMIA
     Dosage: UNK
  3. ANDROGEL [Concomitant]
     Indication: HYPOGONADISM
     Dosage: UNK
  4. CETIRIZINE [Concomitant]
     Dosage: UNK
  5. VALERIAAN [Concomitant]
     Indication: SEDATIVE THERAPY
     Dosage: UNK
  6. TEMAZEPAM [Concomitant]
     Indication: SLEEP DISORDER
     Dosage: UNK
  7. CORTISONE ACETATE [Concomitant]
     Indication: BLOOD CORTICOTROPHIN DECREASED
     Dosage: 12.5 MG, 1X/DAY
     Route: 048
  8. SEROQUEL [Concomitant]
     Indication: PSYCHOTIC DISORDER
     Dosage: UNK
  9. MIRTAZAPINE [Concomitant]
     Indication: DEPRESSION
     Dosage: 30 MG, 1X/DAY
     Dates: start: 20090528

REACTIONS (1)
  - CARDIAC ARREST [None]
